FAERS Safety Report 21980325 (Version 2)
Quarter: 2023Q1

REPORT INFORMATION
  Report Type: Spontaneous
  Country: FR (occurrence: FR)
  Receive Date: 20230211
  Receipt Date: 20230217
  Transmission Date: 20230417
  Serious: Yes (Hospitalization, Other)
  Sender: FDA-Public Use
  Company Number: FR-CELLTRION INC.-2023FR002682

PATIENT

DRUGS (13)
  1. RITUXIMAB [Suspect]
     Active Substance: RITUXIMAB
     Indication: Diffuse large B-cell lymphoma
     Dosage: 8 COURSES OF R-CHOP (RITUXIMAB, CYCLOPHOSPHAMIDE, DOXORUBICIN, VINCRISTINE, AND PREDNISONE) RESULTIN
  2. RITUXIMAB [Suspect]
     Active Substance: RITUXIMAB
     Dosage: 4 COURSES OF R-DHAP REGIMEN (RITUXIMAB, DEXAMETHASONE, AND HIGH-DOSE CYTARABINE, CISPLATIN) WITH COM
  3. CYCLOPHOSPHAMIDE [Suspect]
     Active Substance: CYCLOPHOSPHAMIDE
     Indication: Diffuse large B-cell lymphoma
     Dosage: 8 COURSES OF R-CHOP (RITUXIMAB, CYCLOPHOSPHAMIDE, DOXORUBICIN, VINCRISTINE, AND PREDNISONE) RESULTIN
  4. DOXORUBICIN [Suspect]
     Active Substance: DOXORUBICIN
     Indication: Diffuse large B-cell lymphoma
     Dosage: 8 COURSES OF R-CHOP (RITUXIMAB, CYCLOPHOSPHAMIDE, DOXORUBICIN, VINCRISTINE, AND PREDNISONE) RESULTIN
  5. VINCRISTINE [Suspect]
     Active Substance: VINCRISTINE
     Indication: Diffuse large B-cell lymphoma
     Dosage: 8 COURSES OF R-CHOP (RITUXIMAB, CYCLOPHOSPHAMIDE, DOXORUBICIN, VINCRISTINE, AND PREDNISONE) RESULTIN
  6. PREDNISONE [Suspect]
     Active Substance: PREDNISONE
     Indication: Diffuse large B-cell lymphoma
     Dosage: 8 COURSES OF R-CHOP (RITUXIMAB, CYCLOPHOSPHAMIDE, DOXORUBICIN, VINCRISTINE, AND PREDNISONE) RESULTIN
  7. DEXAMETHASONE [Suspect]
     Active Substance: DEXAMETHASONE
     Indication: Diffuse large B-cell lymphoma
     Dosage: 4 COURSES OF R-DHAP REGIMEN (RITUXIMAB, DEXAMETHASONE, AND HIGH-DOSE CYTARABINE, CISPLATIN) WITH COM
  8. CYTARABINE [Suspect]
     Active Substance: CYTARABINE
     Indication: Diffuse large B-cell lymphoma
     Dosage: 4 COURSES OF R-DHAP REGIMEN (RITUXIMAB, DEXAMETHASONE, AND HIGH-DOSE CYTARABINE, CISPLATIN) WITH COM
  9. CYTARABINE [Suspect]
     Active Substance: CYTARABINE
     Dosage: SHE THEN WAS CONSOLIDATED WITH HIGH-DOSE CHEMOTHERAPY (CARMUSTINE, ETOPOSIDE, CYTARABINE, AND MELPHA
  10. CISPLATIN [Suspect]
     Active Substance: CISPLATIN
     Indication: Diffuse large B-cell lymphoma
     Dosage: 4 COURSES OF R-DHAP REGIMEN (RITUXIMAB, DEXAMETHASONE, AND HIGH-DOSE CYTARABINE, CISPLATIN) WITH COM
  11. CARMUSTINE [Suspect]
     Active Substance: CARMUSTINE
     Indication: Diffuse large B-cell lymphoma
     Dosage: SHE THEN WAS CONSOLIDATED WITH HIGH-DOSE CHEMOTHERAPY (CARMUSTINE, ETOPOSIDE, CYTARABINE, AND MELPHA
  12. ETOPOSIDE [Suspect]
     Active Substance: ETOPOSIDE
     Indication: Diffuse large B-cell lymphoma
     Dosage: SHE THEN WAS CONSOLIDATED WITH HIGH-DOSE CHEMOTHERAPY (CARMUSTINE, ETOPOSIDE, CYTARABINE, AND MELPHA
  13. MELPHALAN [Suspect]
     Active Substance: MELPHALAN
     Indication: Diffuse large B-cell lymphoma
     Dosage: SHE THEN WAS CONSOLIDATED WITH HIGH-DOSE CHEMOTHERAPY (CARMUSTINE, ETOPOSIDE, CYTARABINE, AND MELPHA

REACTIONS (5)
  - Febrile neutropenia [Unknown]
  - Cytomegalovirus infection reactivation [Unknown]
  - Lymphadenitis [Unknown]
  - Lymphadenitis viral [Recovered/Resolved]
  - Product use issue [Unknown]
